FAERS Safety Report 5191257-0 (Version None)
Quarter: 2006Q4

REPORT INFORMATION
  Report Type: 
  Country: None (occurrence: None)
  Receive Date: 20061220
  Receipt Date: 20061220
  Transmission Date: 20070319
  Serious: Yes (Hospitalization)
  Sender: FDA-Public Use
  Company Number: None

PATIENT
  Age: 71 Year
  Sex: Male
  Weight: 92 kg

DRUGS (7)
  1. LEVOFLOXACIN [Suspect]
     Indication: PNEUMONIA
     Dosage: 500MG IV Q24H
     Route: 042
     Dates: start: 20060902
  2. SOLU-MEDROL [Suspect]
     Indication: SARCOIDOSIS
     Dosage: 40MG IV Q6H
     Route: 042
     Dates: start: 20060902
  3. BUMEX [Concomitant]
  4. PEPCID [Concomitant]
  5. NADOLOL [Concomitant]
  6. PREDNISONE TAB [Concomitant]
  7. TYLENOL [Concomitant]

REACTIONS (6)
  - AGGRESSION [None]
  - AGITATION [None]
  - ANXIETY [None]
  - DELIRIUM [None]
  - PYREXIA [None]
  - RENAL FAILURE [None]
